FAERS Safety Report 9735524 (Version 1)
Quarter: 2013Q4

REPORT INFORMATION
  Report Type: Spontaneous
  Country: US (occurrence: US)
  Receive Date: 20131206
  Receipt Date: 20131206
  Transmission Date: 20140711
  Serious: No
  Sender: FDA-Public Use
  Company Number: US-GILEAD-2009-0023463

PATIENT
  Sex: Female
  Weight: 62.6 kg

DRUGS (12)
  1. LETAIRIS [Suspect]
     Indication: PULMONARY ARTERIAL HYPERTENSION
     Route: 048
     Dates: start: 20080521
  2. VENTAVIS [Concomitant]
  3. VIAGRA [Concomitant]
  4. LASIX [Concomitant]
  5. DIGOXIN [Concomitant]
  6. PROTONIX [Concomitant]
  7. EFFEXOR XR [Concomitant]
  8. VICODIN [Concomitant]
  9. POTASSIUM CHLORIDE [Concomitant]
  10. TYLENOL [Concomitant]
  11. IMMODIUM [Concomitant]
  12. LORAZEPAM [Concomitant]

REACTIONS (1)
  - Fatigue [Unknown]
